FAERS Safety Report 18470460 (Version 1)
Quarter: 2020Q4

REPORT INFORMATION
  Report Type: Spontaneous
  Country: US (occurrence: US)
  Receive Date: 20201105
  Receipt Date: 20201105
  Transmission Date: 20210114
  Serious: Yes (Death, Other)
  Sender: FDA-Public Use
  Company Number: US-PURDUE-USA-2020-0157358

PATIENT
  Sex: Male

DRUGS (1)
  1. OXYCONTIN [Suspect]
     Active Substance: OXYCODONE HYDROCHLORIDE
     Indication: PRODUCT USED FOR UNKNOWN INDICATION
     Dosage: UNK
     Route: 048

REACTIONS (7)
  - Completed suicide [Fatal]
  - Constipation [Unknown]
  - Drug dependence [Unknown]
  - Pain [Unknown]
  - Paranoia [Unknown]
  - Discomfort [Unknown]
  - Depression [Unknown]

NARRATIVE: CASE EVENT DATE: 20160323
